FAERS Safety Report 7206059-0 (Version None)
Quarter: 2010Q4

REPORT INFORMATION
  Report Type: 
  Country: None (occurrence: None)
  Receive Date: 20101229
  Receipt Date: 20101229
  Transmission Date: 20110411
  Serious: Yes (Hospitalization)
  Sender: FDA-Public Use
  Company Number: None

PATIENT
  Age: 35 Year
  Sex: Male
  Weight: 77.1115 kg

DRUGS (2)
  1. LARIAM [Suspect]
     Indication: MALARIA
     Dosage: 1 TABLET ONCE A WEEK
     Dates: start: 20101121, end: 20101205
  2. LARIAM [Suspect]
     Indication: PROPHYLAXIS
     Dosage: 1 TABLET ONCE A WEEK
     Dates: start: 20101121, end: 20101205

REACTIONS (6)
  - ANXIETY [None]
  - DEPRESSION [None]
  - HALLUCINATION [None]
  - INTENTIONAL SELF-INJURY [None]
  - PARANOIA [None]
  - THERMAL BURN [None]
